FAERS Safety Report 6723555-0 (Version None)
Quarter: 2010Q2

REPORT INFORMATION
  Report Type: 
  Country: None (occurrence: None)
  Receive Date: 20100513
  Receipt Date: 20100504
  Transmission Date: 20101027
  Serious: Yes (Death)
  Sender: FDA-Public Use
  Company Number: TW-BAXTER-2010BH012592

PATIENT
  Age: 70 Year
  Sex: Female

DRUGS (4)
  1. DIANEAL [Suspect]
     Indication: PERITONEAL DIALYSIS
     Route: 033
     Dates: start: 20040401
  2. DIANEAL [Suspect]
     Route: 033
     Dates: start: 20040401
  3. DIANEAL [Suspect]
     Indication: PERITONEAL DIALYSIS
     Route: 033
     Dates: start: 20040401
  4. DIANEAL [Suspect]
     Route: 033
     Dates: start: 20040401

REACTIONS (1)
  - DEATH [None]
